FAERS Safety Report 14202419 (Version 1)
Quarter: 2017Q4

REPORT INFORMATION
  Report Type: Spontaneous
  Country: RU (occurrence: RU)
  Receive Date: 20171117
  Receipt Date: 20171117
  Transmission Date: 20180321
  Serious: Yes (Life-Threatening)
  Sender: FDA-Public Use
  Company Number: RU-B. BRAUN MEDICAL INC.-2034550

PATIENT
  Age: 15 Year
  Sex: Male

DRUGS (4)
  1. DEXTROSE. [Suspect]
     Active Substance: DEXTROSE
     Dates: start: 20171017, end: 20171017
  2. UROSAN [Concomitant]
     Route: 048
  3. PULMOZYME [Concomitant]
     Active Substance: DORNASE ALFA
     Route: 055
  4. CREON 25000 (PANCREATIN) [Concomitant]
     Route: 048

REACTIONS (4)
  - Hypotension [None]
  - Pallor [None]
  - Tachycardia [None]
  - Fall [None]
